FAERS Safety Report 25236933 (Version 1)
Quarter: 2025Q2

REPORT INFORMATION
  Report Type: Spontaneous
  Country: DE (occurrence: DE)
  Receive Date: 20250424
  Receipt Date: 20250424
  Transmission Date: 20250717
  Serious: Yes (Other)
  Sender: ORGANON
  Company Number: DE-ORGANON-O2504DEU002446

PATIENT
  Age: 16 Year
  Sex: Female

DRUGS (1)
  1. NUVARING [Suspect]
     Active Substance: ETHINYL ESTRADIOL\ETONOGESTREL
     Route: 067
     Dates: start: 202503

REACTIONS (5)
  - Pregnancy with contraceptive device [Unknown]
  - Unintended pregnancy [Unknown]
  - Vaginal haemorrhage [Unknown]
  - Muscle spasms [Unknown]
  - Product use issue [Unknown]

NARRATIVE: CASE EVENT DATE: 20250101
